FAERS Safety Report 17022196 (Version 1)
Quarter: 2019Q4

REPORT INFORMATION
  Report Type: Spontaneous
  Country: US (occurrence: US)
  Receive Date: 20191112
  Receipt Date: 20191112
  Transmission Date: 20200122
  Serious: Yes (Other)
  Sender: FDA-Public Use
  Company Number: US-AMERICAN REGENT INC-2019002428

PATIENT
  Age: 48 Year
  Sex: Male

DRUGS (2)
  1. EPINEPHRINE INJECTION, USP (0517-1071-01) [Suspect]
     Active Substance: EPINEPHRINE
     Indication: ANGIOEDEMA
     Dosage: UNK
     Route: 065
  2. LISINOPRIL. [Concomitant]
     Active Substance: LISINOPRIL
     Indication: HYPERTENSION
     Dosage: UNK
     Route: 065

REACTIONS (2)
  - Drug ineffective for unapproved indication [Unknown]
  - Product use in unapproved indication [Unknown]
